FAERS Safety Report 12114887 (Version 1)
Quarter: 2016Q1

REPORT INFORMATION
  Report Type: Spontaneous
  Country: ES (occurrence: ES)
  Receive Date: 20160225
  Receipt Date: 20160225
  Transmission Date: 20160526
  Serious: Yes (Other)
  Sender: FDA-Public Use
  Company Number: ES-BAYER-2016-018348

PATIENT
  Age: 57 Year
  Sex: Male

DRUGS (1)
  1. ULTRAVIST [Suspect]
     Active Substance: IOPROMIDE
     Indication: COMPUTERISED TOMOGRAM THORAX
     Dosage: UNK UNK, ONCE
     Dates: start: 20150126, end: 20150126

REACTIONS (5)
  - Hypotension [Unknown]
  - Dizziness [Unknown]
  - Hypersensitivity [Unknown]
  - Vomiting [Unknown]
  - Skin reaction [Unknown]

NARRATIVE: CASE EVENT DATE: 20150126
